FAERS Safety Report 5956028-3 (Version None)
Quarter: 2008Q4

REPORT INFORMATION
  Report Type: 
  Country: None (occurrence: None)
  Receive Date: 20081113
  Receipt Date: 20081031
  Transmission Date: 20090506
  Serious: Yes (Death, Hospitalization, Other)
  Sender: FDA-Public Use
  Company Number: GB-2008-0079

PATIENT
  Age: 48 Year
  Sex: Female

DRUGS (3)
  1. NAVELBINE [Suspect]
     Indication: NON-SMALL CELL LUNG CANCER STAGE IIIA
     Dosage: 60 MG/M2 PO
     Route: 048
     Dates: start: 20080414, end: 20080609
  2. NAVELBINE [Suspect]
     Indication: NON-SMALL CELL LUNG CANCER STAGE IIIA
     Dosage: 25 MG/M2 IV
     Route: 042
  3. CARBOPLATIN [Suspect]
     Indication: NON-SMALL CELL LUNG CANCER STAGE IIIA
     Dosage: 655 MG, IV
     Route: 042
     Dates: start: 20080414, end: 20080602

REACTIONS (8)
  - COLLAPSE OF LUNG [None]
  - DIARRHOEA [None]
  - HYPOTENSION [None]
  - LUNG CONSOLIDATION [None]
  - NEUTROPENIC SEPSIS [None]
  - PLEURAL EFFUSION [None]
  - RENAL FAILURE [None]
  - RESPIRATORY FAILURE [None]
